FAERS Safety Report 6554046-8 (Version None)
Quarter: 2010Q1

REPORT INFORMATION
  Report Type: 
  Country: None (occurrence: None)
  Receive Date: 20100127
  Receipt Date: 20100121
  Transmission Date: 20100710
  Serious: Yes (Hospitalization)
  Sender: FDA-Public Use
  Company Number: NL-TEVA-221708ISR

PATIENT
  Sex: Female
  Weight: 105 kg

DRUGS (1)
  1. LITHIUM [Suspect]
     Indication: BIPOLAR DISORDER
     Dates: start: 19800101, end: 20091228

REACTIONS (4)
  - APHASIA [None]
  - DYSPHAGIA [None]
  - GAIT DISTURBANCE [None]
  - TREMOR [None]
